FAERS Safety Report 23548637 (Version 2)
Quarter: 2024Q2

REPORT INFORMATION
  Report Type: Spontaneous
  Country: GB (occurrence: GB)
  Receive Date: 20240221
  Receipt Date: 20240524
  Transmission Date: 20240715
  Serious: Yes (Hospitalization)
  Sender: FDA-Public Use
  Company Number: GB-CATALYST PHARMACEUTICALS, INC-GB-CATA-24-00152

PATIENT
  Age: 73 Year
  Sex: Male

DRUGS (1)
  1. FIRDAPSE [Suspect]
     Active Substance: AMIFAMPRIDINE PHOSPHATE
     Indication: Lipid metabolism disorder
     Dosage: 10 MILLIGRAM EVERY 8 HOUR(S)
     Route: 048
     Dates: start: 20201130

REACTIONS (3)
  - Head injury [Unknown]
  - Fall [Unknown]
  - Off label use [Unknown]

NARRATIVE: CASE EVENT DATE: 20201130
